FAERS Safety Report 5749952-8 (Version None)
Quarter: 2008Q2

REPORT INFORMATION
  Report Type: 
  Country: None (occurrence: None)
  Receive Date: 20080527
  Receipt Date: 20080516
  Transmission Date: 20081010
  Serious: Yes (Hospitalization)
  Sender: FDA-Public Use
  Company Number: TH-JNJFOC-20080503837

PATIENT
  Sex: Male
  Weight: 61 kg

DRUGS (1)
  1. PALIPERIDONE ER [Suspect]
     Indication: SCHIZOPHRENIA
     Route: 048

REACTIONS (3)
  - AGGRESSION [None]
  - DELUSION OF GRANDEUR [None]
  - MANIA [None]
